FAERS Safety Report 7078799-8 (Version None)
Quarter: 2010Q4

REPORT INFORMATION
  Report Type: 
  Country: None (occurrence: None)
  Receive Date: 20101102
  Receipt Date: 20101027
  Transmission Date: 20110411
  Serious: Yes (Congenital Anomaly, Other)
  Sender: FDA-Public Use
  Company Number: US-PFIZER INC-2010092587

PATIENT

DRUGS (3)
  1. ZOLOFT [Suspect]
     Dosage: 50 MG, DAILY
     Route: 064
     Dates: start: 20020101
  2. ZOLOFT [Suspect]
     Dosage: 100 MG, DAILY
     Dates: end: 20070801
  3. ZOLOFT [Suspect]
     Dosage: 50 MG, DAILY
     Dates: start: 20070801, end: 20100114

REACTIONS (2)
  - CONGENITAL ANOMALY [None]
  - DRUG EXPOSURE DURING PREGNANCY [None]
